FAERS Safety Report 7668057-2 (Version None)
Quarter: 2011Q3

REPORT INFORMATION
  Report Type: 
  Country: None (occurrence: None)
  Receive Date: 20110808
  Receipt Date: 20110804
  Transmission Date: 20111222
  Serious: No
  Sender: FDA-Public Use
  Company Number: US-PFIZER INC-2011153474

PATIENT
  Sex: Male
  Weight: 143 kg

DRUGS (14)
  1. CRESTOR [Concomitant]
     Dosage: UNK
  2. FENOFIBRIC ACID [Concomitant]
     Dosage: UNK
  3. CLONIDINE [Concomitant]
     Dosage: UNK
  4. COUMADIN [Concomitant]
     Dosage: UNK
  5. BYETTA [Concomitant]
     Indication: DIABETES MELLITUS
     Dosage: UNK
  6. TOPROL-XL [Concomitant]
     Dosage: UNK
  7. ZITHROMAX [Suspect]
     Indication: BRONCHITIS
     Dosage: UNK
     Dates: start: 20080101
  8. AVAPRO [Concomitant]
     Dosage: UNK
  9. AMARYL [Concomitant]
     Dosage: UNK
  10. INSULIN [Concomitant]
     Indication: DIABETES MELLITUS
     Dosage: UNK
  11. SITAGLIPTIN [Concomitant]
     Dosage: UNK
  12. TRICOR [Concomitant]
     Dosage: UNK
  13. NOVOLOG [Concomitant]
     Indication: DIABETES MELLITUS
     Dosage: UNK
  14. PEPCID [Concomitant]
     Dosage: UNK

REACTIONS (1)
  - NO ADVERSE EVENT [None]
